FAERS Safety Report 5311071-2 (Version None)
Quarter: 2007Q2

REPORT INFORMATION
  Report Type: 
  Country: None (occurrence: None)
  Receive Date: 20070427
  Receipt Date: 20070427
  Transmission Date: 20071010
  Serious: Yes (Other)
  Sender: FDA-Public Use
  Company Number: None

PATIENT
  Age: 47 Year
  Sex: Female
  Weight: 77.1115 kg

DRUGS (1)
  1. TOPAMAX [Suspect]
     Indication: HEADACHE
     Dosage: 100MG PER DAY 75MG PER DAY
     Dates: start: 20051201, end: 20070420

REACTIONS (3)
  - FATIGUE [None]
  - HYPOTHALAMO-PITUITARY DISORDER [None]
  - WEIGHT INCREASED [None]
